FAERS Safety Report 6652955-2 (Version None)
Quarter: 2010Q1

REPORT INFORMATION
  Report Type: 
  Country: None (occurrence: None)
  Receive Date: 20100326
  Receipt Date: 20100315
  Transmission Date: 20100710
  Serious: Yes (Other)
  Sender: FDA-Public Use
  Company Number: PHHY2010DE16580

PATIENT
  Age: 54 Year
  Sex: Male

DRUGS (1)
  1. CORDINATE PLUS [Suspect]
     Dosage: 0.5 DF, QD
     Route: 048
     Dates: start: 20080101

REACTIONS (2)
  - PARAESTHESIA [None]
  - POLYNEUROPATHY [None]
